FAERS Safety Report 5113346-9 (Version None)
Quarter: 2006Q3

REPORT INFORMATION
  Report Type: 
  Country: None (occurrence: None)
  Receive Date: 20060920
  Receipt Date: 20060912
  Transmission Date: 20061208
  Serious: Yes (Other)
  Sender: FDA-Public Use
  Company Number: 2006BI010588

PATIENT
  Sex: Female

DRUGS (2)
  1. AVONEX [Suspect]
     Indication: MULTIPLE SCLEROSIS
     Dosage: 30 UG;QW;IM
     Route: 030
     Dates: start: 19990701
  2. AVONEX [Suspect]
     Indication: MULTIPLE SCLEROSIS
     Dosage: 30 UG;QW;IM
     Route: 030

REACTIONS (6)
  - BLINDNESS [None]
  - CARDIOLIPIN ANTIBODY [None]
  - OCULAR VASCULAR DISORDER [None]
  - RENAL VEIN OCCLUSION [None]
  - RETINAL ARTERY OCCLUSION [None]
  - RETINAL VASCULAR DISORDER [None]
